FAERS Safety Report 21635046 (Version 3)
Quarter: 2022Q4

REPORT INFORMATION
  Report Type: Spontaneous
  Country: US (occurrence: US)
  Receive Date: 20221123
  Receipt Date: 20221209
  Transmission Date: 20230113
  Serious: Yes (Other)
  Sender: FDA-Public Use
  Company Number: US-SUNOVION-2022SUN003271

PATIENT
  Sex: Female

DRUGS (3)
  1. LATUDA [Suspect]
     Active Substance: LURASIDONE HYDROCHLORIDE
     Indication: Depression
     Dosage: UNK
     Route: 048
  2. CAFFEINE [Suspect]
     Active Substance: CAFFEINE
     Dosage: UNK
  3. TRAZODONE [Suspect]
     Active Substance: TRAZODONE HYDROCHLORIDE
     Dosage: UNK

REACTIONS (9)
  - Cardiac flutter [Recovered/Resolved]
  - Angina pectoris [Recovered/Resolved]
  - Bradyphrenia [Unknown]
  - Chest discomfort [Unknown]
  - Mania [Unknown]
  - Insomnia [Unknown]
  - Therapeutic response unexpected [Unknown]
  - Off label use [Unknown]
  - Drug effective for unapproved indication [Unknown]
